FAERS Safety Report 7559054-6 (Version None)
Quarter: 2011Q2

REPORT INFORMATION
  Report Type: 
  Country: None (occurrence: None)
  Receive Date: 20110621
  Receipt Date: 20110609
  Transmission Date: 20111010
  Serious: Yes (Hospitalization)
  Sender: FDA-Public Use
  Company Number: TR-KINGPHARMUSA00001-K201100686

PATIENT
  Age: 14 Year
  Sex: Male

DRUGS (11)
  1. ALLOPURINOL [Suspect]
     Indication: T-CELL TYPE ACUTE LEUKAEMIA
     Dosage: UNK, 7 DAYS ON/2 WEEKS OFF
  2. DEXAMETHASONE [Suspect]
     Indication: T-CELL TYPE ACUTE LEUKAEMIA
     Dosage: UNK, 7 DAYS ON/2 WEEKS OFF
  3. VINCRISTINE [Suspect]
     Indication: T-CELL TYPE ACUTE LEUKAEMIA
     Dosage: UNK, 7 DAYS ON/2 WEEKS OFF
  4. LINEZOLID [Concomitant]
     Dosage: UNK
  5. SEPTRA [Suspect]
     Indication: PNEUMONIA
     Dosage: UNK
     Route: 048
  6. METHOTREXATE [Suspect]
     Indication: T-CELL TYPE ACUTE LEUKAEMIA
     Dosage: UNK, 7 DAYS ON/2 WEEKS OFF
  7. NETILMICIN SULFATE [Concomitant]
     Dosage: UNK
  8. CYCLOPHOSPHAMIDE [Suspect]
     Indication: T-CELL TYPE ACUTE LEUKAEMIA
     Dosage: UNK, 7 DAYS ON/2 WEEKS OFF
  9. CASPOFUNGIN ACETATE [Concomitant]
     Dosage: UNK
  10. ASPARAGINASE [Suspect]
     Indication: T-CELL TYPE ACUTE LEUKAEMIA
     Dosage: UNK, 7 DAYS ON/2 WEEKS OFF
  11. CYTARABINE [Suspect]
     Indication: T-CELL TYPE ACUTE LEUKAEMIA
     Dosage: UNK, 7 DAYS ON/2 WEEKS OFF

REACTIONS (8)
  - MANIA [None]
  - DELUSION OF GRANDEUR [None]
  - FLIGHT OF IDEAS [None]
  - ELEVATED MOOD [None]
  - SLEEP DISORDER [None]
  - IRRITABILITY [None]
  - LOGORRHOEA [None]
  - PRESSURE OF SPEECH [None]
